FAERS Safety Report 9683435 (Version 1)
Quarter: 2013Q4

REPORT INFORMATION
  Report Type: Spontaneous
  Country: TR (occurrence: TR)
  Receive Date: 20131112
  Receipt Date: 20131112
  Transmission Date: 20140711
  Serious: Yes (Hospitalization)
  Sender: FDA-Public Use
  Company Number: TR-NOVOPROD-392044

PATIENT
  Sex: Female
  Weight: 2.97 kg

DRUGS (4)
  1. NOVORAPID [Suspect]
     Indication: GESTATIONAL DIABETES
     Dosage: 6 U, QD
     Route: 064
  2. NOVORAPID [Suspect]
     Indication: GESTATIONAL DIABETES
     Dosage: 6 U, QD
     Route: 064
  3. INSULATARD HM PENFILL [Suspect]
     Indication: GESTATIONAL DIABETES
     Dosage: 2 U, QD
     Route: 064
  4. FOLIC ACID [Concomitant]
     Dosage: 400 UG, QD
     Route: 064

REACTIONS (1)
  - Neonatal infection [Recovered/Resolved]
